FAERS Safety Report 16205908 (Version 1)
Quarter: 2019Q2

REPORT INFORMATION
  Report Type: Spontaneous
  Country: US (occurrence: US)
  Receive Date: 20190417
  Receipt Date: 20190417
  Transmission Date: 20190711
  Serious: No
  Sender: FDA-Public Use
  Company Number: US-ASTRAZENECA-2019SE45123

PATIENT
  Age: 757 Month
  Sex: Female
  Weight: 108.9 kg

DRUGS (6)
  1. FLEXERIL [Concomitant]
     Active Substance: CYCLOBENZAPRINE HYDROCHLORIDE
  2. XANAX [Concomitant]
     Active Substance: ALPRAZOLAM
  3. MULTIVITAMIN [Concomitant]
     Active Substance: VITAMINS
  4. LYNPARZA [Suspect]
     Active Substance: OLAPARIB
     Indication: OVARIAN CANCER
     Route: 048
     Dates: start: 20180102
  5. CYMBALTA [Concomitant]
     Active Substance: DULOXETINE HYDROCHLORIDE
  6. LYRICA [Concomitant]
     Active Substance: PREGABALIN

REACTIONS (1)
  - Tooth fracture [Not Recovered/Not Resolved]

NARRATIVE: CASE EVENT DATE: 201812
